FAERS Safety Report 9510929 (Version 1)
Quarter: 2013Q3

REPORT INFORMATION
  Report Type: Report from Study
  Country: ID (occurrence: ID)
  Receive Date: 20130910
  Receipt Date: 20130910
  Transmission Date: 20140515
  Serious: Yes (Death)
  Sender: FDA-Public Use
  Company Number: ID-ROCHE-1271377

PATIENT
  Age: 57 Year
  Sex: Male

DRUGS (4)
  1. AVASTIN [Suspect]
     Indication: COLORECTAL CANCER METASTATIC
     Route: 042
     Dates: start: 20130516, end: 20130806
  2. LEUCOVORIN [Concomitant]
     Indication: COLORECTAL CANCER METASTATIC
  3. 5-FU [Concomitant]
     Indication: COLORECTAL CANCER METASTATIC
  4. OXALIPLATIN [Concomitant]
     Indication: COLORECTAL CANCER METASTATIC

REACTIONS (1)
  - General physical health deterioration [Fatal]
